FAERS Safety Report 22241969 (Version 2)
Quarter: 2023Q2

REPORT INFORMATION
  Report Type: Report from Study
  Country: MX (occurrence: MX)
  Receive Date: 20230421
  Receipt Date: 20230512
  Transmission Date: 20230721
  Serious: Yes (Other)
  Sender: FDA-Public Use
  Company Number: MX-002147023-NVSC2023MX048802

PATIENT
  Age: 61 Year
  Sex: Female
  Weight: 74 kg

DRUGS (1)
  1. OFATUMUMAB [Suspect]
     Active Substance: OFATUMUMAB
     Indication: Multiple sclerosis
     Dosage: 20 MG, QMO (7TH DAY OF EACH MONTH)
     Route: 058
     Dates: start: 20230206

REACTIONS (12)
  - Gastric ulcer [Unknown]
  - Restlessness [Unknown]
  - Hyperphagia [Unknown]
  - Headache [Recovered/Resolved]
  - COVID-19 [Not Recovered/Not Resolved]
  - Feeling abnormal [Unknown]
  - Cough [Not Recovered/Not Resolved]
  - Dysgeusia [Not Recovered/Not Resolved]
  - Hypersomnia [Unknown]
  - Abdominal pain upper [Not Recovered/Not Resolved]
  - Burning sensation [Unknown]
  - Product container seal issue [Not Recovered/Not Resolved]

NARRATIVE: CASE EVENT DATE: 20230206
